FAERS Safety Report 14304974 (Version 1)
Quarter: 2017Q4

REPORT INFORMATION
  Report Type: Spontaneous
  Country: PL (occurrence: PL)
  Receive Date: 20171219
  Receipt Date: 20171219
  Transmission Date: 20180321
  Serious: Yes (Other)
  Sender: FDA-Public Use
  Company Number: PL-OTSUKA-15789142

PATIENT
  Age: 21 Year
  Sex: Male

DRUGS (1)
  1. ABILIFY [Suspect]
     Active Substance: ARIPIPRAZOLE
     Indication: BIPOLAR DISORDER
     Dosage: FOR 4 DAYS,THEN 15 MG PER DAY(MORNING),DOSE INCD TO 22.5MG,30MG,6 WEEKS
     Route: 065

REACTIONS (11)
  - Nightmare [Unknown]
  - Memory impairment [Unknown]
  - Delusion [Unknown]
  - Disturbance in attention [Unknown]
  - Apathy [Unknown]
  - Anxiety [Unknown]
  - Agitation [Unknown]
  - Somnolence [Unknown]
  - Fatigue [Unknown]
  - Suicidal ideation [Unknown]
  - Mood altered [Recovered/Resolved]
